FAERS Safety Report 17201728 (Version 1)
Quarter: 2019Q4

REPORT INFORMATION
  Report Type: Spontaneous
  Country: US (occurrence: US)
  Receive Date: 20191226
  Receipt Date: 20191226
  Transmission Date: 20200122
  Serious: Yes (Other)
  Sender: FDA-Public Use
  Company Number: NVSC2019US077969

PATIENT
  Age: 69 Year
  Sex: Male

DRUGS (1)
  1. HYDROXYCHLOROQUINE [Suspect]
     Active Substance: HYDROXYCHLOROQUINE
     Indication: Q FEVER
     Dosage: 8.25 MG/KG, QD
     Route: 065

REACTIONS (1)
  - Retinopathy [Unknown]
